FAERS Safety Report 9976374 (Version 1)
Quarter: 2014Q1

REPORT INFORMATION
  Report Type: Report from Study
  Country: US (occurrence: US)
  Receive Date: 20140306
  Receipt Date: 20140306
  Transmission Date: 20141002
  Serious: No
  Sender: FDA-Public Use
  Company Number: US-ABBVIE-13P-163-1166666-00

PATIENT
  Age: 53 Year
  Sex: Female

DRUGS (2)
  1. HUMIRA [Suspect]
     Indication: ANKYLOSING SPONDYLITIS
     Route: 058
     Dates: start: 20130904, end: 20131016
  2. HUMIRA [Suspect]
     Route: 058
     Dates: start: 20131015

REACTIONS (2)
  - Blister [Not Recovered/Not Resolved]
  - Rash vesicular [Recovering/Resolving]
